FAERS Safety Report 22392847 (Version 1)
Quarter: 2023Q2

REPORT INFORMATION
  Report Type: Spontaneous
  Country: US (occurrence: None)
  Receive Date: 20230531
  Receipt Date: 20230531
  Transmission Date: 20230722
  Serious: Yes (Hospitalization)
  Sender: FDA-Public Use
  Company Number: None

PATIENT

DRUGS (1)
  1. CAPECITABINE [Suspect]
     Active Substance: CAPECITABINE
     Indication: Pancreatic carcinoma
     Dosage: OTHER QUANTITY : 3T;?FREQUENCY : TWICE A DAY;?OTHER ROUTE : POM-F;?
     Route: 050

REACTIONS (2)
  - Hospitalisation [None]
  - Therapy interrupted [None]
